FAERS Safety Report 6221365-4 (Version None)
Quarter: 2009Q2

REPORT INFORMATION
  Report Type: 
  Country: None (occurrence: None)
  Receive Date: 20090605
  Receipt Date: 20090529
  Transmission Date: 20091009
  Serious: Yes (Death)
  Sender: FDA-Public Use
  Company Number: BE-WYE-H09542309

PATIENT
  Age: 66 Year
  Sex: Male

DRUGS (12)
  1. INOTUZUMAB OZOGAMICIN (INOTUZUMAB OZOGAMICIN, INJECTION) [Suspect]
     Indication: DIFFUSE LARGE B-CELL LYMPHOMA
     Dosage: 3.52 MG (1.8 MG/M^2) EVERY 28 DAYS INTRAVENOUS
     Route: 042
     Dates: start: 20081029, end: 20090225
  2. INOTUZUMAB OZOGAMICIN (INOTUZUMAB OZOGAMICIN, INJECTION) [Suspect]
     Indication: NON-HODGKIN'S LYMPHOMA
     Dosage: 3.52 MG (1.8 MG/M^2) EVERY 28 DAYS INTRAVENOUS
     Route: 042
     Dates: start: 20081029, end: 20090225
  3. RITUXAN/INOTUZUMAB OZOGAMICIN (RITUXIMAB/INOTUZUMAB OZOGAMICIN, INJECT [Suspect]
     Indication: DIFFUSE LARGE B-CELL LYMPHOMA
     Dosage: INTRAVENOUS
     Route: 042
     Dates: start: 20081028, end: 20090225
  4. RITUXAN/INOTUZUMAB OZOGAMICIN (RITUXIMAB/INOTUZUMAB OZOGAMICIN, INJECT [Suspect]
     Indication: NON-HODGKIN'S LYMPHOMA
     Dosage: INTRAVENOUS
     Route: 042
     Dates: start: 20081028, end: 20090225
  5. MEDROL [Concomitant]
  6. ALLOPURINOL [Concomitant]
  7. ZANTAC 150 [Concomitant]
  8. ULTRA-MG (MAGNESIUM GLUCONATE) [Concomitant]
  9. BUMETANIDE [Concomitant]
  10. ALDACTONE [Concomitant]
  11. EPREX [Concomitant]
  12. METOPROLOL TARTRATE [Concomitant]

REACTIONS (16)
  - ACTIVATED PARTIAL THROMBOPLASTIN TIME SHORTENED [None]
  - ACUTE HEPATIC FAILURE [None]
  - ACUTE RESPIRATORY DISTRESS SYNDROME [None]
  - ESCHERICHIA SEPSIS [None]
  - GASTRIC ULCER [None]
  - GASTROINTESTINAL HAEMORRHAGE [None]
  - HEPATIC CIRRHOSIS [None]
  - HEPATIC LESION [None]
  - ISCHAEMIC HEPATITIS [None]
  - LYMPHOMA [None]
  - MALIGNANT NEOPLASM PROGRESSION [None]
  - NEUTROPENIA [None]
  - PLEURAL EFFUSION [None]
  - REFLUX OESOPHAGITIS [None]
  - RENAL FAILURE ACUTE [None]
  - SEPTIC SHOCK [None]
